FAERS Safety Report 5422456-8 (Version None)
Quarter: 2007Q3

REPORT INFORMATION
  Report Type: 
  Country: None (occurrence: None)
  Receive Date: 20070822
  Receipt Date: 20070821
  Transmission Date: 20080115
  Serious: Yes (Hospitalization, Other)
  Sender: FDA-Public Use
  Company Number: US-BRISTOL-MYERS SQUIBB COMPANY-13883400

PATIENT
  Age: 65 Year
  Sex: Male
  Weight: 91 kg

DRUGS (2)
  1. CISPLATIN [Suspect]
     Indication: NEOPLASM MALIGNANT
     Dosage: 100MG/M2 ON DAYS 1 AND 22
     Dates: start: 20070612, end: 20070612
  2. RADIATION THERAPY [Suspect]
     Indication: NEOPLASM MALIGNANT
     Dosage: 70 CGY IN 35 FRACTIONS OVER 6WEEKS
     Dates: start: 20070702, end: 20070702

REACTIONS (4)
  - DEHYDRATION [None]
  - DYSPHAGIA [None]
  - DYSPNOEA [None]
  - SALIVARY GLAND DISORDER [None]
